FAERS Safety Report 6466721-4 (Version None)
Quarter: 2009Q4

REPORT INFORMATION
  Report Type: 
  Country: None (occurrence: None)
  Receive Date: 20091202
  Receipt Date: 20091109
  Transmission Date: 20100525
  Serious: Yes (Other)
  Sender: FDA-Public Use
  Company Number: BE-ASTRAZENECA-2004AC00980

PATIENT
  Sex: Female

DRUGS (2)
  1. MARCAINE [Suspect]
     Indication: ANAESTHESIA
     Route: 042
  2. SUFENTANIL CITRATE [Suspect]
     Indication: ANAESTHESIA

REACTIONS (1)
  - CAUDA EQUINA SYNDROME [None]
